FAERS Safety Report 7767511-2 (Version None)
Quarter: 2011Q3

REPORT INFORMATION
  Report Type: 
  Country: None (occurrence: None)
  Receive Date: 20110919
  Receipt Date: 20110912
  Transmission Date: 20111222
  Serious: Yes (Other)
  Sender: FDA-Public Use
  Company Number: ACO_26569_2011

PATIENT
  Age: 42 Year
  Sex: Female
  Weight: 65.8 kg

DRUGS (4)
  1. AMANTADINE HCL [Suspect]
     Indication: MULTIPLE SCLEROSIS
     Dosage: 100 MG, TID, ORAL
     Route: 048
     Dates: start: 20010101
  2. BACLOFEN [Suspect]
     Dosage: 20 MG, TID, ORAL
     Route: 048
     Dates: start: 20010101
  3. AMPYRA [Suspect]
     Indication: GAIT DISTURBANCE
     Dosage: 10 MG, BID, ORAL
     Route: 048
     Dates: start: 20110601, end: 20110911
  4. FLUOXETINE HYDROCHLORIDE [Suspect]
     Indication: PRODUCT USED FOR UNKNOWN INDICATION
     Dosage: 40 MG, QD, ORAL
     Route: 048
     Dates: start: 20010101

REACTIONS (5)
  - VOMITING [None]
  - ACCIDENTAL OVERDOSE [None]
  - SPEECH DISORDER [None]
  - HYPERHIDROSIS [None]
  - ASTHENIA [None]
